FAERS Safety Report 25283422 (Version 1)
Quarter: 2025Q2

REPORT INFORMATION
  Report Type: Spontaneous
  Country: US (occurrence: US)
  Receive Date: 20250508
  Receipt Date: 20250508
  Transmission Date: 20250717
  Serious: Yes (Other)
  Sender: QUAGEN PHARMACEUTICALS
  Company Number: US-QUAGEN-2025QUASPO00318

PATIENT
  Sex: Female

DRUGS (1)
  1. GLYCOPYRROLATE [Suspect]
     Active Substance: GLYCOPYRROLATE
     Indication: Product used for unknown indication
     Route: 065

REACTIONS (6)
  - Petit mal epilepsy [Unknown]
  - Unresponsive to stimuli [Unknown]
  - Gait disturbance [Unknown]
  - Heart rate increased [Unknown]
  - Constipation [Unknown]
  - Vision blurred [Unknown]

NARRATIVE: CASE EVENT DATE: 20250421
